FAERS Safety Report 9060963 (Version 6)
Quarter: 2013Q3

REPORT INFORMATION
  Report Type: Spontaneous
  Country: US (occurrence: US)
  Receive Date: 20130213
  Receipt Date: 20130725
  Transmission Date: 20140515
  Serious: No
  Sender: FDA-Public Use
  Company Number: US-009507513-1302USA003945

PATIENT
  Age: 52 Year
  Sex: Male
  Weight: 77.98 kg

DRUGS (9)
  1. PEG-INTRON [Suspect]
     Indication: HEPATITIS C
     Dosage: 150 MICROGRAM, ONCE A WEEK, REDIPEN
     Route: 058
     Dates: start: 20130125, end: 20130705
  2. REBETOL [Suspect]
     Indication: HEPATITIS C
     Dosage: 1200 MG/DAY
     Route: 048
     Dates: start: 20130125
  3. REBETOL [Suspect]
     Dosage: 600 MG/DAY
     Route: 048
     Dates: start: 20130612, end: 20130612
  4. VITAMINS (UNSPECIFIED) [Concomitant]
     Route: 048
  5. CALCIUM (UNSPECIFIED) (+) VITAMIN D (UNSPECIFIED) [Concomitant]
     Route: 048
  6. ZINC (UNSPECIFIED) [Concomitant]
     Route: 048
  7. ASCORBIC ACID [Concomitant]
     Route: 048
  8. TYLENOL [Concomitant]
     Route: 048
  9. VITAMIN B (UNSPECIFIED) [Concomitant]

REACTIONS (27)
  - Paraesthesia [Unknown]
  - Disturbance in attention [Unknown]
  - Fatigue [Unknown]
  - Myalgia [Unknown]
  - Headache [Unknown]
  - Dizziness [Unknown]
  - Dry skin [Unknown]
  - Myalgia [Unknown]
  - Irritability [Unknown]
  - Confusional state [Not Recovered/Not Resolved]
  - Fatigue [Unknown]
  - Irritability [Unknown]
  - Feeling abnormal [Unknown]
  - Weight decreased [Unknown]
  - Rash pruritic [Unknown]
  - Dry skin [Unknown]
  - Disturbance in attention [Unknown]
  - Memory impairment [Unknown]
  - Confusional state [Unknown]
  - Dysgeusia [Unknown]
  - Haemoglobin decreased [Unknown]
  - Asthenia [Unknown]
  - Fatigue [Unknown]
  - Dyspnoea [Unknown]
  - Pruritus [Unknown]
  - Dry skin [Unknown]
  - Alopecia [Unknown]
